FAERS Safety Report 7478550-3 (Version None)
Quarter: 2011Q2

REPORT INFORMATION
  Report Type: 
  Country: None (occurrence: None)
  Receive Date: 20110513
  Receipt Date: 20110510
  Transmission Date: 20111010
  Serious: Yes (Hospitalization, Other)
  Sender: FDA-Public Use
  Company Number: JP-PFIZER INC-2011091049

PATIENT
  Age: 55 Year
  Sex: Female

DRUGS (2)
  1. VARENICLINE TARTRATE [Suspect]
     Indication: SMOKING CESSATION THERAPY
     Dosage: 2 MG, 1X/DAY
     Route: 048
     Dates: start: 20110101, end: 20110427
  2. THYRADIN [Suspect]
     Indication: HYPOTHYROIDISM
     Dosage: UNK
     Dates: start: 20110101

REACTIONS (4)
  - THYROID OPERATION [None]
  - CHEST DISCOMFORT [None]
  - HYPOTHYROIDISM [None]
  - BLOOD CALCIUM DECREASED [None]
